FAERS Safety Report 8536177-6 (Version None)
Quarter: 2012Q3

REPORT INFORMATION
  Report Type: 
  Country: None (occurrence: None)
  Receive Date: 20120725
  Receipt Date: 20120718
  Transmission Date: 20120928
  Serious: Yes (Hospitalization, Other)
  Sender: FDA-Public Use
  Company Number: JP-009507513-1207JPN009198

PATIENT

DRUGS (2)
  1. MIRTAZAPINE [Suspect]
     Indication: DEPRESSION
  2. MIRTAZAPINE [Suspect]
     Indication: INSOMNIA
     Dosage: 15 MG
     Route: 048
     Dates: start: 20120701

REACTIONS (1)
  - RENAL FAILURE ACUTE [None]
